FAERS Safety Report 7153877-3 (Version None)
Quarter: 2010Q4

REPORT INFORMATION
  Report Type: 
  Country: None (occurrence: None)
  Receive Date: 20101213
  Receipt Date: 20101207
  Transmission Date: 20110411
  Serious: Yes (Hospitalization, Congenital Anomaly, Other)
  Sender: FDA-Public Use
  Company Number: US-PFIZER INC-2008050012

PATIENT
  Sex: Male
  Weight: 3 kg

DRUGS (3)
  1. ZOLOFT [Suspect]
     Dosage: UNK
     Route: 064
     Dates: start: 20000214
  2. PRENATAL VITAMINS [Concomitant]
  3. DULCOLAX [Concomitant]

REACTIONS (54)
  - ABDOMINAL DISTENSION [None]
  - ACUTE TONSILLITIS [None]
  - ADENOIDAL HYPERTROPHY [None]
  - APGAR SCORE LOW [None]
  - ASTHMA [None]
  - ATRIAL SEPTAL DEFECT [None]
  - BRADYCARDIA [None]
  - BRAIN STEM GLIOMA [None]
  - CARDIAC ARREST [None]
  - CARDIAC MURMUR [None]
  - CARDIAC VALVE DISEASE [None]
  - CARDIOMEGALY [None]
  - CLOSTRIDIAL INFECTION [None]
  - CONGENITAL OESOPHAGEAL WEB [None]
  - CONSTIPATION [None]
  - DENTAL CARIES [None]
  - DEVELOPMENTAL DELAY [None]
  - DIARRHOEA [None]
  - DRUG EXPOSURE DURING PREGNANCY [None]
  - ECZEMA [None]
  - ELECTROCARDIOGRAM ABNORMAL [None]
  - FAILURE TO THRIVE [None]
  - FALLOT'S TETRALOGY [None]
  - FOETAL HEART RATE DECREASED [None]
  - GASTROINTESTINAL FUNGAL INFECTION [None]
  - GASTROINTESTINAL MALFORMATION [None]
  - GROWTH RETARDATION [None]
  - HAEMATOCHEZIA [None]
  - HYPOKINESIA [None]
  - HYPOXIA [None]
  - INFANTILE COLIC [None]
  - INTESTINAL OBSTRUCTION [None]
  - JAUNDICE [None]
  - LETHARGY [None]
  - MATERNAL DRUGS AFFECTING FOETUS [None]
  - MOTOR DYSFUNCTION [None]
  - OTITIS MEDIA [None]
  - OXYGEN SATURATION DECREASED [None]
  - PARAINFLUENZAE VIRUS INFECTION [None]
  - PLEURAL EFFUSION [None]
  - PULMONARY ARTERY STENOSIS CONGENITAL [None]
  - PULMONARY VALVE INCOMPETENCE [None]
  - RESPIRATORY DEPRESSION [None]
  - RESPIRATORY TRACT INFECTION [None]
  - RIGHT VENTRICULAR SYSTOLIC PRESSURE INCREASED [None]
  - SINUSITIS [None]
  - SPEECH DISORDER [None]
  - TRICUSPID VALVE INCOMPETENCE [None]
  - UPPER AIRWAY OBSTRUCTION [None]
  - UPPER RESPIRATORY TRACT INFECTION [None]
  - UPPER-AIRWAY COUGH SYNDROME [None]
  - VENTRICULAR SEPTAL DEFECT [None]
  - VOMITING [None]
  - WEIGHT DECREASED [None]
